FAERS Safety Report 8376664-7 (Version None)
Quarter: 2012Q2

REPORT INFORMATION
  Report Type: 
  Country: None (occurrence: None)
  Receive Date: 20120522
  Receipt Date: 20120521
  Transmission Date: 20120825
  Serious: Yes (Death, Other)
  Sender: FDA-Public Use
  Company Number: BE-BAYER-2012-046837

PATIENT
  Age: 19 Year
  Sex: Female

DRUGS (3)
  1. AVELOX [Suspect]
     Indication: MONONUCLEOSIS SYNDROME
     Dosage: UNK
     Route: 048
     Dates: start: 20120101, end: 20120101
  2. MOTILIUM [Interacting]
  3. AMOXICILLIN [Concomitant]
     Indication: TONSILLITIS
     Dosage: UNK
     Dates: start: 20120101, end: 20120101

REACTIONS (5)
  - HYPOKALAEMIA [None]
  - SYNCOPE [None]
  - MALAISE [None]
  - TORSADE DE POINTES [None]
  - VOMITING [None]
